FAERS Safety Report 10057647 (Version 1)
Quarter: 2014Q2

REPORT INFORMATION
  Report Type: Spontaneous
  Country: US (occurrence: US)
  Receive Date: 20140404
  Receipt Date: 20140404
  Transmission Date: 20141212
  Serious: Yes (Other)
  Sender: FDA-Public Use
  Company Number: US-BIOGENIDEC-2014BI030196

PATIENT
  Age: 43 Year
  Sex: Female

DRUGS (11)
  1. TYSABRI [Suspect]
     Indication: MULTIPLE SCLEROSIS
     Route: 042
     Dates: start: 20111129, end: 20121029
  2. ALPRAZOLAM [Concomitant]
     Route: 048
     Dates: start: 20101215
  3. BACLOFEN [Concomitant]
     Route: 048
     Dates: start: 20101215
  4. DEPO-PROVERA [Concomitant]
  5. FENTANYL [Concomitant]
     Route: 061
     Dates: start: 20101215
  6. LEVETIRACETAM [Concomitant]
     Dates: start: 20110113
  7. MODAFINIL [Concomitant]
     Route: 048
     Dates: start: 20101110
  8. NUCYNTA [Concomitant]
     Route: 048
     Dates: start: 20101215
  9. OXYBUTYNIN [Concomitant]
     Route: 048
     Dates: start: 20111207
  10. OXYCODONE-ACETAMINOPHEN [Concomitant]
     Dates: start: 20101215
  11. REPLAX [Concomitant]
     Route: 048
     Dates: start: 20101215

REACTIONS (1)
  - Precancerous cells present [Recovered/Resolved]
